FAERS Safety Report 9789142 (Version 1)
Quarter: 2013Q4

REPORT INFORMATION
  Report Type: Spontaneous
  Country: US (occurrence: US)
  Receive Date: 20131230
  Receipt Date: 20131230
  Transmission Date: 20140711
  Serious: Yes (Other)
  Sender: FDA-Public Use
  Company Number: US-TEVA-452417USA

PATIENT
  Sex: Female

DRUGS (1)
  1. PARAGARD 380A [Suspect]
     Indication: CONTRACEPTION
     Route: 015
     Dates: start: 20131206, end: 20131206

REACTIONS (4)
  - Device dislocation [Recovered/Resolved]
  - Muscle spasms [Unknown]
  - Discomfort [Unknown]
  - Medical device complication [Unknown]
